FAERS Safety Report 6007449-4 (Version None)
Quarter: 2008Q4

REPORT INFORMATION
  Report Type: 
  Country: None (occurrence: None)
  Receive Date: 20081217
  Receipt Date: 20080422
  Transmission Date: 20090506
  Serious: No
  Sender: FDA-Public Use
  Company Number: US-ASTRAZENECA-2008UW08127

PATIENT
  Age: 83 Year
  Sex: Female
  Weight: 58.1 kg

DRUGS (6)
  1. CRESTOR [Suspect]
     Indication: BLOOD CHOLESTEROL INCREASED
     Route: 048
     Dates: start: 20080301
  2. ZETIA [Concomitant]
  3. TOPROL-XL [Concomitant]
     Route: 048
  4. NORVASC [Concomitant]
  5. CALCIUM SUPPLEMENT [Concomitant]
  6. LOVAZA [Concomitant]

REACTIONS (2)
  - ABDOMINAL DISTENSION [None]
  - MYALGIA [None]
